FAERS Safety Report 12577670 (Version 1)
Quarter: 2016Q3

REPORT INFORMATION
  Report Type: Spontaneous
  Country: DO (occurrence: DO)
  Receive Date: 20160720
  Receipt Date: 20160720
  Transmission Date: 20161109
  Serious: Yes (Death)
  Sender: FDA-Public Use
  Company Number: DO-ASTRAZENECA-2016SE78321

PATIENT
  Sex: Female

DRUGS (1)
  1. ATACAND PLUS [Suspect]
     Active Substance: CANDESARTAN CILEXETIL\HYDROCHLOROTHIAZIDE
     Dosage: 32/12.5MG
     Route: 048

REACTIONS (1)
  - Death [Fatal]
